FAERS Safety Report 9525769 (Version 1)
Quarter: 2013Q3

REPORT INFORMATION
  Report Type: Report from Study
  Country: US (occurrence: US)
  Receive Date: 20130916
  Receipt Date: 20130916
  Transmission Date: 20140515
  Serious: Yes (Other)
  Sender: FDA-Public Use
  Company Number: US-BIOGENIDEC-2013BI086640

PATIENT
  Age: 75 Year
  Sex: Male

DRUGS (5)
  1. TYSABRI [Suspect]
     Indication: MULTIPLE SCLEROSIS
     Route: 042
     Dates: start: 20080814, end: 20091029
  2. ARICEPT [Concomitant]
  3. ASPIRIN [Concomitant]
  4. PROVIGIL [Concomitant]
  5. PARLODEL [Concomitant]

REACTIONS (1)
  - Breast cancer [Recovered/Resolved]
